FAERS Safety Report 9230709 (Version 1)
Quarter: 2013Q2

REPORT INFORMATION
  Report Type: Spontaneous
  Country: ZA (occurrence: ZA)
  Receive Date: 20130415
  Receipt Date: 20130415
  Transmission Date: 20140414
  Serious: Yes (Hospitalization)
  Sender: FDA-Public Use
  Company Number: ZA-NOVOPROD-372918

PATIENT
  Age: 38 Year
  Sex: Female
  Weight: 92 kg

DRUGS (7)
  1. PROTAPHANE FLEXPEN [Suspect]
     Indication: GESTATIONAL DIABETES
     Dosage: 26-30 IU, SINGLE
     Route: 058
     Dates: start: 20130201
  2. NOVORAPID FLEXPEN [Suspect]
     Indication: GESTATIONAL DIABETES
     Dosage: 20 IU, TID
     Route: 058
     Dates: start: 20130201
  3. NOVORAPID FLEXPEN [Suspect]
     Dosage: 28-20 IU, TID
     Dates: start: 20130301
  4. FOLIC ACID [Concomitant]
     Dosage: UNK
  5. OMEGA 3                            /01334101/ [Concomitant]
     Dosage: UNK
     Route: 048
  6. IRON [Concomitant]
     Route: 048
  7. CALCIUM [Concomitant]
     Dosage: UNK
     Route: 048

REACTIONS (3)
  - Labour pain [Unknown]
  - Blood glucose decreased [Not Recovered/Not Resolved]
  - Exposure during pregnancy [Not Recovered/Not Resolved]
